FAERS Safety Report 8233342-2 (Version None)
Quarter: 2012Q1

REPORT INFORMATION
  Report Type: 
  Country: None (occurrence: None)
  Receive Date: 20120326
  Receipt Date: 20120320
  Transmission Date: 20120608
  Serious: Yes (Other)
  Sender: FDA-Public Use
  Company Number: TW-US-EMD SERONO, INC.-7118669

PATIENT
  Sex: Female
  Weight: 75 kg

DRUGS (11)
  1. PROPRANOLOL [Concomitant]
     Indication: ARRHYTHMIA
     Route: 048
     Dates: start: 20111006
  2. REBIF [Suspect]
     Indication: RELAPSING-REMITTING MULTIPLE SCLEROSIS
     Route: 058
     Dates: start: 20111111, end: 20120128
  3. ZOLOFT [Concomitant]
     Indication: SUICIDAL BEHAVIOUR
     Route: 048
     Dates: start: 20111006, end: 20111227
  4. SENNOSIDE [Concomitant]
     Indication: CONSTIPATION
     Route: 048
     Dates: start: 20111006
  5. GABAPENTIN [Concomitant]
     Indication: NEURALGIA
     Route: 048
     Dates: start: 20111006
  6. MIDAZOLAM HCL [Concomitant]
     Indication: INSOMNIA
     Route: 048
     Dates: start: 20111014
  7. PREDNISONE TAB [Concomitant]
     Indication: IMMUNOSUPPRESSANT DRUG THERAPY
     Route: 048
     Dates: start: 20111006
  8. ESTRAZOLAM [Concomitant]
     Indication: INSOMNIA
     Route: 048
     Dates: start: 20111006, end: 20111014
  9. MESYREL (DESYREL) [Concomitant]
     Indication: INSOMNIA
     Route: 048
     Dates: start: 20111006, end: 20120119
  10. MESYREL (DESYREL) [Concomitant]
     Route: 048
     Dates: start: 20120120
  11. AZATHIOPRINE [Concomitant]
     Indication: IMMUNOSUPPRESSANT DRUG THERAPY
     Route: 048
     Dates: start: 20111006

REACTIONS (1)
  - INJECTION SITE ULCER [None]
